FAERS Safety Report 16801396 (Version 1)
Quarter: 2019Q3

REPORT INFORMATION
  Report Type: Other
  Country: US (occurrence: US)
  Receive Date: 20190912
  Receipt Date: 20190912
  Transmission Date: 20191005
  Serious: Yes (Hospitalization)
  Sender: FDA-Public Use
  Company Number: US-EMD SERONO-9115079

PATIENT
  Age: 74 Year
  Sex: Female

DRUGS (3)
  1. AVELUMAB [Suspect]
     Active Substance: AVELUMAB
     Indication: OVARIAN EPITHELIAL CANCER
  2. ENTINOSTAT [Concomitant]
     Active Substance: ENTINOSTAT
  3. ENTINOSTAT [Concomitant]
     Active Substance: ENTINOSTAT
     Indication: OVARIAN EPITHELIAL CANCER

REACTIONS (4)
  - Respiratory failure [Recovered/Resolved]
  - Myasthenia gravis [Recovering/Resolving]
  - Weight decreased [Unknown]
  - Off label use [Unknown]

NARRATIVE: CASE EVENT DATE: 201702
